FAERS Safety Report 4807750-3 (Version None)
Quarter: 2005Q4

REPORT INFORMATION
  Report Type: 
  Country: None (occurrence: None)
  Receive Date: 20051019
  Receipt Date: 20051005
  Transmission Date: 20060501
  Serious: Yes (Other)
  Sender: FDA-Public Use
  Company Number: JP-2005-020724

PATIENT
  Age: 73 Year
  Sex: Male

DRUGS (3)
  1. BETASERON [Suspect]
     Indication: RELAPSING-REMITTING MULTIPLE SCLEROSIS
     Dosage: 8 + 4 + 4MIU, 1 DOSE, SUBCUTANEOUS
     Route: 058
     Dates: start: 20010402, end: 20010402
  2. BETASERON [Suspect]
     Indication: RELAPSING-REMITTING MULTIPLE SCLEROSIS
     Dosage: 8 + 4 + 4MIU, 1 DOSE, SUBCUTANEOUS
     Route: 058
     Dates: start: 20010403, end: 20010414
  3. BETASERON [Suspect]
     Indication: RELAPSING-REMITTING MULTIPLE SCLEROSIS
     Dosage: 8 + 4 + 4MIU, 1 DOSE, SUBCUTANEOUS
     Route: 058
     Dates: start: 20010416

REACTIONS (1)
  - CEREBRAL INFARCTION [None]
